FAERS Safety Report 19646784 (Version 1)
Quarter: 2021Q3

REPORT INFORMATION
  Report Type: Spontaneous
  Country: NL (occurrence: NL)
  Receive Date: 20210802
  Receipt Date: 20210802
  Transmission Date: 20211014
  Serious: Yes (Other)
  Sender: FDA-Public Use
  Company Number: NL-PFIZER INC-202100938789

PATIENT
  Age: 33 Year
  Sex: Female
  Weight: 65 kg

DRUGS (6)
  1. OXAZEPAM. [Concomitant]
     Active Substance: OXAZEPAM
     Dosage: 10 MG, AS NEEDED
  2. OMEPRAZOL [Concomitant]
     Active Substance: OMEPRAZOLE
     Dosage: 40 MG, 1X/DAY
  3. DOXAZOSIN MESILATE [Suspect]
     Active Substance: DOXAZOSIN MESYLATE
     Indication: POST-TRAUMATIC STRESS DISORDER
     Dosage: 4 MG, 1X/DAY
     Dates: start: 20210709, end: 20210710
  4. VERAPAMIL HYDROCHLOIRDE [Concomitant]
     Active Substance: VERAPAMIL HYDROCHLORIDE
     Dosage: 60 MG, 1X/DAY
  5. FLUOXETINE [Concomitant]
     Active Substance: FLUOXETINE HYDROCHLORIDE
     Dosage: 20 MG
  6. ETHINYLESTRADIOL/LEVONORGESTREL [Concomitant]
     Active Substance: ETHINYL ESTRADIOL\LEVONORGESTREL
     Dosage: 20/100 ?G

REACTIONS (8)
  - Dizziness [Unknown]
  - Nausea [Unknown]
  - Tremor [Unknown]
  - Off label use [Unknown]
  - Feeling hot [Unknown]
  - Arrhythmia [Recovering/Resolving]
  - Presyncope [Recovering/Resolving]
  - Tachycardia [Recovering/Resolving]

NARRATIVE: CASE EVENT DATE: 20210709
